FAERS Safety Report 8340167-6 (Version None)
Quarter: 2012Q2

REPORT INFORMATION
  Report Type: 
  Country: None (occurrence: None)
  Receive Date: 20120507
  Receipt Date: 20120404
  Transmission Date: 20120825
  Serious: No
  Sender: FDA-Public Use
  Company Number: US-ASTRAZENECA-2012SE22615

PATIENT
  Age: 52 Year
  Sex: Female

DRUGS (1)
  1. VIMOVO [Suspect]
     Route: 048

REACTIONS (4)
  - BLOOD URINE PRESENT [None]
  - POLLAKIURIA [None]
  - NAUSEA [None]
  - ABDOMINAL DISCOMFORT [None]
